FAERS Safety Report 9660894 (Version 1)
Quarter: 2013Q4

REPORT INFORMATION
  Report Type: Spontaneous
  Country: CO (occurrence: CO)
  Receive Date: 20131031
  Receipt Date: 20131031
  Transmission Date: 20140711
  Serious: Yes (Hospitalization, Other)
  Sender: FDA-Public Use
  Company Number: CO-BAYER-2013-128982

PATIENT
  Sex: Male

DRUGS (1)
  1. REGORAFENIB [Suspect]
     Indication: COLORECTAL CANCER
     Dosage: UNK
     Dates: start: 201309

REACTIONS (2)
  - Dehydration [Unknown]
  - Mucosal inflammation [Unknown]
